FAERS Safety Report 6671635-0 (Version None)
Quarter: 2010Q2

REPORT INFORMATION
  Report Type: 
  Country: None (occurrence: None)
  Receive Date: 20100406
  Receipt Date: 20100406
  Transmission Date: 20101027
  Serious: Yes (Hospitalization)
  Sender: FDA-Public Use
  Company Number: None

PATIENT
  Sex: Female

DRUGS (1)
  1. PEGASPARGASE [Suspect]
     Indication: ACUTE LYMPHOCYTIC LEUKAEMIA
     Dosage: IV DRIP
     Route: 041
     Dates: start: 20100311, end: 20100311

REACTIONS (2)
  - ANTITHROMBIN III DECREASED [None]
  - PULMONARY EMBOLISM [None]
